APPROVED DRUG PRODUCT: DEXMETHYLPHENIDATE HYDROCHLORIDE
Active Ingredient: DEXMETHYLPHENIDATE HYDROCHLORIDE
Strength: 30MG
Dosage Form/Route: CAPSULE, EXTENDED RELEASE;ORAL
Application: A079108 | Product #005 | TE Code: AB
Applicant: IMPAX LABORATORIES INC
Approved: Nov 21, 2013 | RLD: No | RS: No | Type: RX